FAERS Safety Report 5325099-X (Version None)
Quarter: 2007Q2

REPORT INFORMATION
  Report Type: 
  Country: None (occurrence: None)
  Receive Date: 20070515
  Receipt Date: 20070507
  Transmission Date: 20071010
  Serious: Yes (Other)
  Sender: FDA-Public Use
  Company Number: JP-ROCHE-496793

PATIENT
  Age: 65 Year
  Sex: Female

DRUGS (3)
  1. TAMIFLU [Suspect]
     Indication: INFLUENZA
     Route: 048
     Dates: start: 20070305, end: 20070307
  2. CALONAL [Concomitant]
     Dosage: TAKEN AS NEEDED.
     Dates: start: 20070301, end: 20070301
  3. MUCODYNE [Concomitant]
     Route: 048

REACTIONS (1)
  - HYPOTHERMIA [None]
